FAERS Safety Report 16621182 (Version 1)
Quarter: 2019Q3

REPORT INFORMATION
  Report Type: Spontaneous
  Country: US (occurrence: US)
  Receive Date: 20190610
  Receipt Date: 20190610
  Transmission Date: 20191004
  Serious: No
  Sender: FDA-Public Use
  Company Number: None

PATIENT
  Age: 62 Year
  Sex: Male
  Weight: 107 kg

DRUGS (3)
  1. TOPIRAMATE. [Suspect]
     Active Substance: TOPIRAMATE
     Indication: AFFECTIVE DISORDER
     Dates: start: 20190123, end: 20190306
  2. TOPIRAMATE. [Suspect]
     Active Substance: TOPIRAMATE
     Indication: APPETITE DISORDER
     Dates: start: 20190123, end: 20190306
  3. TOPIRAMATE. [Suspect]
     Active Substance: TOPIRAMATE
     Indication: PERSISTENT DEPRESSIVE DISORDER
     Dates: start: 20190123, end: 20190306

REACTIONS (6)
  - Photophobia [None]
  - Conjunctivitis allergic [None]
  - Ocular discomfort [None]
  - Eye pain [None]
  - Eye swelling [None]
  - Dry eye [None]

NARRATIVE: CASE EVENT DATE: 20190306
